FAERS Safety Report 8100443-9 (Version None)
Quarter: 2012Q1

REPORT INFORMATION
  Report Type: 
  Country: None (occurrence: None)
  Receive Date: 20120129
  Receipt Date: 20111101
  Transmission Date: 20120608
  Serious: No
  Sender: FDA-Public Use
  Company Number: US-ABBOTT-11P-163-0870395-00

PATIENT
  Age: 38 Year
  Sex: Male

DRUGS (8)
  1. LOSARTAN POTASSIUM [Concomitant]
     Indication: BLOOD PRESSURE
     Dosage: DAILY
  2. HUMIRA [Suspect]
     Indication: CROHN'S DISEASE
     Dates: start: 20110801
  3. FISH OIL [Concomitant]
     Indication: BLOOD CHOLESTEROL
  4. VITAMIN TAB [Concomitant]
     Indication: PRODUCT USED FOR UNKNOWN INDICATION
  5. WELCHOL [Concomitant]
     Indication: DIARRHOEA
     Dosage: 1-3 TIMES DAILY
  6. TACLONEX [Concomitant]
     Indication: PSORIASIS
  7. IMODIUM [Concomitant]
     Indication: DIARRHOEA
  8. CLARITIN [Concomitant]
     Indication: HYPERSENSITIVITY
     Dosage: 10 MG 3 TIMES AS NEEDED

REACTIONS (1)
  - BLOOD TESTOSTERONE DECREASED [None]
